FAERS Safety Report 7639476-5 (Version None)
Quarter: 2011Q3

REPORT INFORMATION
  Report Type: 
  Country: None (occurrence: None)
  Receive Date: 20110727
  Receipt Date: 20110722
  Transmission Date: 20111222
  Serious: Yes (Other)
  Sender: FDA-Public Use
  Company Number: US-GLAXOSMITHKLINE-A0938030A

PATIENT
  Age: 81 Year
  Sex: Female

DRUGS (9)
  1. ATENOLOL [Concomitant]
  2. VITAMIN B-12 [Concomitant]
  3. PROAIR HFA [Concomitant]
  4. LOVAZA [Concomitant]
  5. VITAMIN D [Concomitant]
  6. SPIRIVA [Concomitant]
  7. ASPIRIN [Concomitant]
  8. ADVAIR DISKUS 100/50 [Suspect]
     Indication: CHRONIC OBSTRUCTIVE PULMONARY DISEASE
     Dosage: 1PUFF PER DAY
     Route: 055
     Dates: start: 20110703, end: 20110705
  9. FUROSEMIDE [Concomitant]

REACTIONS (6)
  - DYSPHONIA [None]
  - DEPRESSED MOOD [None]
  - GLOSSODYNIA [None]
  - DRY MOUTH [None]
  - APHASIA [None]
  - OROPHARYNGEAL PAIN [None]
